FAERS Safety Report 15704954 (Version 1)
Quarter: 2018Q4

REPORT INFORMATION
  Report Type: Spontaneous
  Country: US (occurrence: US)
  Receive Date: 20181210
  Receipt Date: 20181210
  Transmission Date: 20190205
  Serious: Yes (Other)
  Sender: FDA-Public Use
  Company Number: US-SA-2018SA332561

PATIENT
  Age: 58 Year
  Sex: Female
  Weight: 110 kg

DRUGS (15)
  1. WARFARIN [Concomitant]
     Active Substance: WARFARIN
  2. JANUVIA [Concomitant]
     Active Substance: SITAGLIPTIN PHOSPHATE
  3. CARBAMAZEPINE. [Concomitant]
     Active Substance: CARBAMAZEPINE
  4. SIMVASTATIN. [Concomitant]
     Active Substance: SIMVASTATIN
  5. TAXOTERE [Suspect]
     Active Substance: DOCETAXEL
     Dosage: UNK
     Route: 042
     Dates: start: 20150701, end: 20150701
  6. CELEBREX [Concomitant]
     Active Substance: CELECOXIB
  7. TRAMADOL. [Concomitant]
     Active Substance: TRAMADOL
  8. TAXOTERE [Suspect]
     Active Substance: DOCETAXEL
     Indication: BREAST CANCER FEMALE
     Dosage: UNK UNK, Q3W
     Route: 042
     Dates: start: 20150311, end: 20150311
  9. GABAPENTIN. [Concomitant]
     Active Substance: GABAPENTIN
  10. DULOXETINE. [Concomitant]
     Active Substance: DULOXETINE
  11. METFORMIN [Concomitant]
     Active Substance: METFORMIN HYDROCHLORIDE
  12. ELIQUIS [Concomitant]
     Active Substance: APIXABAN
     Dosage: UNK
     Dates: start: 201712
  13. ATORVASTATIN [Concomitant]
     Active Substance: ATORVASTATIN
  14. PARAPLATIN [Concomitant]
     Active Substance: CARBOPLATIN
  15. HYDROCODONE/ACETAMINOPHEN [Concomitant]
     Active Substance: ACETAMINOPHEN\HYDROCODONE

REACTIONS (1)
  - Alopecia [Recovering/Resolving]

NARRATIVE: CASE EVENT DATE: 201503
